FAERS Safety Report 4836550-3 (Version None)
Quarter: 2005Q4

REPORT INFORMATION
  Report Type: 
  Country: None (occurrence: None)
  Receive Date: 20051121
  Receipt Date: 20051107
  Transmission Date: 20060501
  Serious: Yes (Other)
  Sender: FDA-Public Use
  Company Number: 2005152611

PATIENT
  Sex: Female

DRUGS (7)
  1. XALATAN [Suspect]
     Indication: GLAUCOMA
     Dosage: SINGLE INTERVAL: EVERYDAY, OPHTHALIMIC
     Route: 047
     Dates: start: 19980301, end: 20050101
  2. CAPOTRIL (CAPTOPRIL) (CAPTOPRIL) [Concomitant]
  3. ATENOLOL [Concomitant]
  4. HYDROCHLOROTHIAZIDE [Concomitant]
  5. OLCADIL (CLOXAZOLAM) (CLOXAZOLAM) [Concomitant]
  6. TAMOXIFEN CITRATE [Concomitant]
  7. LIPITOR [Concomitant]

REACTIONS (2)
  - BREAST CANCER FEMALE [None]
  - DRUG INEFFECTIVE [None]
